FAERS Safety Report 5766680-3 (Version None)
Quarter: 2008Q2

REPORT INFORMATION
  Report Type: 
  Country: None (occurrence: None)
  Receive Date: 20080612
  Receipt Date: 20080530
  Transmission Date: 20081010
  Serious: Yes (Death, Life-Threatening, Other)
  Sender: FDA-Public Use
  Company Number: GB-JNJFOC-20071109990

PATIENT
  Sex: Female
  Weight: 62 kg

DRUGS (9)
  1. REMICADE [Suspect]
     Indication: RHEUMATOID ARTHRITIS
     Route: 042
  2. PREDNISOLONE [Concomitant]
  3. ALENDRONATE SODIUM [Concomitant]
  4. CO-DYDRAMOL [Concomitant]
  5. ETORICOXIB [Concomitant]
  6. SENNA [Concomitant]
  7. CYCLOSPORINE [Concomitant]
  8. LACTULOSE [Concomitant]
  9. LOSEC I.V. [Concomitant]

REACTIONS (4)
  - ABDOMINAL INFECTION [None]
  - OSTEOARTHRITIS [None]
  - OSTEOPOROSIS [None]
  - SEPSIS [None]
